FAERS Safety Report 10332506 (Version 1)
Quarter: 2014Q3

REPORT INFORMATION
  Report Type: Spontaneous
  Country: FR (occurrence: FR)
  Receive Date: 20140722
  Receipt Date: 20140722
  Transmission Date: 20150326
  Serious: Yes (Other)
  Sender: FDA-Public Use
  Company Number: FR-BRISTOL-MYERS SQUIBB COMPANY-21224639

PATIENT
  Age: 14 Year
  Sex: Male

DRUGS (1)
  1. ABILIFY [Suspect]
     Active Substance: ARIPIPRAZOLE
     Dates: start: 201401, end: 201405

REACTIONS (1)
  - Seminal vesicular disorder [Unknown]

NARRATIVE: CASE EVENT DATE: 201405
